FAERS Safety Report 8880477 (Version 5)
Quarter: 2013Q2

REPORT INFORMATION
  Report Type: Report from Study
  Country: CA (occurrence: CA)
  Receive Date: 20121031
  Receipt Date: 20130613
  Transmission Date: 20140414
  Serious: Yes (Hospitalization, Other)
  Sender: FDA-Public Use
  Company Number: CA-ROCHE-1150841

PATIENT
  Sex: Female

DRUGS (6)
  1. VEMURAFENIB [Suspect]
     Indication: METASTATIC MALIGNANT MELANOMA
     Route: 048
     Dates: start: 20120817
  2. VEMURAFENIB [Suspect]
     Route: 048
     Dates: start: 20121026, end: 201306
  3. PERCOCET [Concomitant]
  4. CLONAZEPAM [Concomitant]
  5. PROZAC [Concomitant]
  6. GABAPENTIN [Concomitant]

REACTIONS (11)
  - Candida infection [Recovering/Resolving]
  - Type 2 diabetes mellitus [Not Recovered/Not Resolved]
  - Rash [Not Recovered/Not Resolved]
  - Skin ulcer [Unknown]
  - Urinary tract infection [Not Recovered/Not Resolved]
  - Swelling [Unknown]
  - Spinal pain [Not Recovered/Not Resolved]
  - Pain in extremity [Not Recovered/Not Resolved]
  - Skin toxicity [Unknown]
  - Disease progression [Not Recovered/Not Resolved]
  - Drug ineffective [Unknown]
